FAERS Safety Report 4312333-8 (Version None)
Quarter: 2004Q1

REPORT INFORMATION
  Report Type: 
  Country: None (occurrence: None)
  Receive Date: 20040304
  Receipt Date: 20040304
  Transmission Date: 20041129
  Serious: No
  Sender: FDA-Public Use
  Company Number: None

PATIENT
  Age: 43 Year
  Sex: Female
  Weight: 64.4108 kg

DRUGS (10)
  1. FLOVENT [Suspect]
     Indication: ASTHMA
     Dosage: 2 PUFFS BID W/SPACER
     Dates: start: 20000930, end: 20001113
  2. FLOVENT [Suspect]
     Indication: ASTHMA
     Dosage: 2 PUFFS BID W/SPACER
     Dates: start: 20001113, end: 20040223
  3. FLONASE [Concomitant]
  4. NASONEX [Concomitant]
  5. ALLEGRA [Concomitant]
  6. CLARINEX [Concomitant]
  7. SINGULAIR [Concomitant]
  8. PROVENTIL [Concomitant]
  9. PATANOL [Concomitant]
  10. MAXAIR [Concomitant]

REACTIONS (1)
  - CATARACT SUBCAPSULAR [None]
